FAERS Safety Report 4840061-9 (Version None)
Quarter: 2005Q4

REPORT INFORMATION
  Report Type: 
  Country: None (occurrence: None)
  Receive Date: 20051125
  Receipt Date: 20051115
  Transmission Date: 20060501
  Serious: Yes (Other)
  Sender: FDA-Public Use
  Company Number: 2005157104

PATIENT
  Sex: Male

DRUGS (1)
  1. BENYLIN [Suspect]
     Dosage: ORAL
     Route: 048
     Dates: start: 20051115, end: 20051115

REACTIONS (1)
  - THROAT TIGHTNESS [None]
